FAERS Safety Report 5739316-5 (Version None)
Quarter: 2008Q2

REPORT INFORMATION
  Report Type: 
  Country: None (occurrence: None)
  Receive Date: 20080512
  Receipt Date: 20080512
  Transmission Date: 20081010
  Serious: Yes (Hospitalization)
  Sender: FDA-Public Use
  Company Number: None

PATIENT
  Sex: Female
  Weight: 76.6 kg

DRUGS (6)
  1. CYCLOPHOSPHAMIDE [Suspect]
     Dosage: 1656 MG
  2. DOXORUBICIN HYDROCHLORIDE [Suspect]
     Dosage: 88 MG
  3. ETOPOSIDE [Suspect]
     Dosage: 440 MG
  4. PREDNISONE [Suspect]
     Dosage: 990 MG
  5. RITUXIMAB (MOAB C2B8 ANTI CD20, CHIMERIC) [Suspect]
     Dosage: 690 MG
  6. VINCRISTINE SULFATE [Suspect]
     Dosage: 2 MG

REACTIONS (3)
  - CHILLS [None]
  - MUCOSAL INFLAMMATION [None]
  - PYREXIA [None]
